FAERS Safety Report 4934178-8 (Version None)
Quarter: 2006Q1

REPORT INFORMATION
  Report Type: 
  Country: None (occurrence: None)
  Receive Date: 20060302
  Receipt Date: 20060221
  Transmission Date: 20060701
  Serious: Yes (Hospitalization)
  Sender: FDA-Public Use
  Company Number: 200610997BWH

PATIENT
  Age: 42 Year
  Sex: Female

DRUGS (14)
  1. AVELOX [Suspect]
     Indication: DRUG USE FOR UNKNOWN INDICATION
  2. REBIF [Suspect]
     Indication: MULTIPLE SCLEROSIS
     Dosage: TIW, SUBCUTANEOUS
     Route: 058
     Dates: start: 20050516, end: 20050701
  3. REBIF [Suspect]
     Indication: MULTIPLE SCLEROSIS
     Dosage: TIW, SUBCUTANEOUS
     Route: 058
     Dates: start: 20050401
  4. XANAX [Concomitant]
  5. GABAPENTIN [Concomitant]
  6. MEGESTROL [Concomitant]
  7. CALCIUM-SANDOZ [Concomitant]
  8. WELLBUTRIN [Concomitant]
  9. QUESTRAN [Concomitant]
  10. METOPROLOL SUCCINATE [Concomitant]
  11. FERROUS SULFATE TAB [Concomitant]
  12. B-KOMPLEX ^LECIVA^ [Concomitant]
  13. FOSAMAX [Concomitant]
  14. LOVENOX [Concomitant]

REACTIONS (1)
  - CARDIOMYOPATHY [None]
